FAERS Safety Report 4745054-8 (Version None)
Quarter: 2005Q3

REPORT INFORMATION
  Report Type: 
  Country: None (occurrence: None)
  Receive Date: 20050815
  Receipt Date: 20050114
  Transmission Date: 20060218
  Serious: Yes (Hospitalization)
  Sender: FDA-Public Use
  Company Number: RU-SOLVAY-00205002613

PATIENT
  Age: 27493 Day
  Sex: Female
  Weight: 109 kg

DRUGS (3)
  1. METOPROLOL [Concomitant]
     Indication: ILL-DEFINED DISORDER
     Dosage: DAILY DOSE:  UNKNOWN
     Route: 048
     Dates: start: 20000101
  2. BLINDED THERAPY [PERINDOPRIL VS PLACEBO] [Suspect]
     Indication: CARDIAC FAILURE CONGESTIVE
     Dosage: DAILY DOSE: 2 DOSAGE FORM
     Route: 048
     Dates: start: 20010618
  3. HYPOTHIAZID [Concomitant]
     Indication: ILL-DEFINED DISORDER
     Dosage: DAILY DOSE:  UNKNOWN
     Route: 065
     Dates: start: 20000101

REACTIONS (1)
  - ATRIAL FIBRILLATION [None]
